FAERS Safety Report 6343837-4 (Version None)
Quarter: 2009Q3

REPORT INFORMATION
  Report Type: 
  Country: None (occurrence: None)
  Receive Date: 20090908
  Receipt Date: 20090902
  Transmission Date: 20100115
  Serious: Yes (Other)
  Sender: FDA-Public Use
  Company Number: PHHY2009PE37402

PATIENT
  Age: 75 Year
  Sex: Male

DRUGS (1)
  1. RASILEZ [Suspect]
     Indication: HYPERTENSION
     Dosage: 150 MG

REACTIONS (3)
  - HYPOKINESIA [None]
  - MUSCLE RIGIDITY [None]
  - PARKINSONISM [None]
